FAERS Safety Report 6099112-9 (Version None)
Quarter: 2009Q1

REPORT INFORMATION
  Report Type: 
  Country: None (occurrence: None)
  Receive Date: 20090302
  Receipt Date: 20090225
  Transmission Date: 20090719
  Serious: No
  Sender: FDA-Public Use
  Company Number: US-B.I. PHARMACEUTICALS,INC./RIDGEFIELD-2009-BP-01775BP

PATIENT
  Age: 58 Year
  Sex: Female

DRUGS (6)
  1. CLONIDINE HCL [Suspect]
     Indication: HYPERTENSION
  2. CLONIDINE HCL [Suspect]
     Indication: ABDOMINAL NEOPLASM
  3. CATAPRES-TTS-1 [Suspect]
     Indication: HYPERTENSION
  4. HRT PATCH [Concomitant]
     Indication: MENOPAUSE
  5. CLONIDINE TABS (GENERIC) [Concomitant]
     Indication: HYPERTENSION
     Dosage: .8MG
     Route: 048
     Dates: start: 20080401
  6. HBP MED [Concomitant]

REACTIONS (4)
  - APPLICATION SITE BLEEDING [None]
  - APPLICATION SITE RASH [None]
  - APPLICATION SITE VESICLES [None]
  - DRUG INEFFECTIVE [None]
